FAERS Safety Report 5766181-2 (Version None)
Quarter: 2008Q2

REPORT INFORMATION
  Report Type: 
  Country: None (occurrence: None)
  Receive Date: 20080606
  Receipt Date: 20080603
  Transmission Date: 20081010
  Serious: Yes (Other)
  Sender: FDA-Public Use
  Company Number: 2008SP008269

PATIENT
  Age: 56 Year
  Sex: Female
  Weight: 83.9154 kg

DRUGS (7)
  1. CLARITIN [Suspect]
     Indication: HYPERSENSITIVITY
     Dosage: 10 MG;QD;PO
     Route: 048
     Dates: start: 20080201, end: 20080415
  2. CLARITIN [Suspect]
     Indication: MIDDLE EAR EFFUSION
     Dosage: 10 MG;QD;PO
     Route: 048
     Dates: start: 20080201, end: 20080415
  3. ZOCOR [Concomitant]
  4. BENICAR HCT [Concomitant]
  5. TOPROL-XL [Concomitant]
  6. PREVACID [Concomitant]
  7. METFORMIN [Concomitant]

REACTIONS (1)
  - HALLUCINATION, VISUAL [None]
